FAERS Safety Report 8551797-0 (Version None)
Quarter: 2012Q3

REPORT INFORMATION
  Report Type: 
  Country: None (occurrence: None)
  Receive Date: 20120730
  Receipt Date: 20120720
  Transmission Date: 20120928
  Serious: Yes (Hospitalization)
  Sender: FDA-Public Use
  Company Number: IT-TEVA-349524ISR

PATIENT
  Sex: Female

DRUGS (2)
  1. CARBOLITHIUM CEPHALON [Suspect]
     Route: 048
     Dates: start: 20120708, end: 20120708
  2. TOPAMAX [Suspect]
     Route: 048
     Dates: start: 20120708, end: 20120708

REACTIONS (2)
  - HYPOKINESIA [None]
  - DRUG ABUSE [None]
